FAERS Safety Report 4360303-6 (Version None)
Quarter: 2004Q2

REPORT INFORMATION
  Report Type: 
  Country: None (occurrence: None)
  Receive Date: 20040519
  Receipt Date: 20040510
  Transmission Date: 20050107
  Serious: Yes (Hospitalization)
  Sender: FDA-Public Use
  Company Number: BE-JNJFOC-20040502447

PATIENT
  Age: 62 Year
  Sex: Male

DRUGS (5)
  1. REMICADE [Suspect]
     Route: 042
  2. REMICADE [Suspect]
     Indication: RHEUMATOID ARTHRITIS
     Route: 042
  3. LEDERTREXATE [Concomitant]
  4. FOLIC ACID [Concomitant]
  5. CELEBREX [Concomitant]

REACTIONS (4)
  - ABDOMINAL MASS [None]
  - ESCHERICHIA SEPSIS [None]
  - FLATULENCE [None]
  - NODULE [None]
